FAERS Safety Report 7769241-X (Version None)
Quarter: 2011Q3

REPORT INFORMATION
  Report Type: 
  Country: None (occurrence: None)
  Receive Date: 20110922
  Receipt Date: 20110916
  Transmission Date: 20111222
  Serious: Yes (Other)
  Sender: FDA-Public Use
  Company Number: FR-ABBOTT-11P-056-0854030-00

PATIENT
  Age: 78 Year
  Sex: Female

DRUGS (7)
  1. FENOFIBRATE [Suspect]
     Indication: PRODUCT USED FOR UNKNOWN INDICATION
  2. ERLOTINIB HYDROCHLORIDE [Interacting]
     Indication: LUNG NEOPLASM MALIGNANT
  3. ERLOTINIB HYDROCHLORIDE [Interacting]
  4. ALPRAZOLAM [Concomitant]
     Indication: PRODUCT USED FOR UNKNOWN INDICATION
  5. ERLOTINIB HYDROCHLORIDE [Interacting]
  6. ESCITALOPRAM [Concomitant]
     Indication: PRODUCT USED FOR UNKNOWN INDICATION
  7. ERLOTINIB HYDROCHLORIDE [Interacting]

REACTIONS (3)
  - DRUG LEVEL DECREASED [None]
  - DRUG INTERACTION [None]
  - RASH [None]
